FAERS Safety Report 7358587-5 (Version None)
Quarter: 2011Q1

REPORT INFORMATION
  Report Type: 
  Country: None (occurrence: None)
  Receive Date: 20110317
  Receipt Date: 20110302
  Transmission Date: 20110831
  Serious: Yes (Other)
  Sender: FDA-Public Use
  Company Number: US-MERCK-0703USA03517

PATIENT
  Sex: Male

DRUGS (2)
  1. JANUVIA [Suspect]
     Indication: TYPE 2 DIABETES MELLITUS
     Route: 048
  2. JANUVIA [Suspect]
     Route: 048
     Dates: start: 20110101, end: 20110217

REACTIONS (2)
  - CARDIAC DISORDER [None]
  - HYPOGLYCAEMIA [None]
